FAERS Safety Report 19142806 (Version 1)
Quarter: 2021Q2

REPORT INFORMATION
  Report Type: Spontaneous
  Country: US (occurrence: US)
  Receive Date: 20210416
  Receipt Date: 20210416
  Transmission Date: 20210717
  Serious: No
  Sender: FDA-Public Use
  Company Number: US-TERSERA THERAPEUTICS LLC-2020TRS004449

PATIENT

DRUGS (3)
  1. XERMELO [Suspect]
     Active Substance: TELOTRISTAT ETHYL
     Dosage: 250 MG, TID
     Route: 048
  2. SOMATULINE [LANREOTIDE] [Concomitant]
     Active Substance: LANREOTIDE
     Indication: PRODUCT USED FOR UNKNOWN INDICATION
     Dosage: 120 MG, MONTHLY
     Route: 065
  3. XERMELO [Suspect]
     Active Substance: TELOTRISTAT ETHYL
     Indication: CARCINOID SYNDROME
     Dosage: 250 MG, TID
     Route: 048
     Dates: start: 20201216

REACTIONS (7)
  - Diarrhoea [Not Recovered/Not Resolved]
  - Flushing [Unknown]
  - Flatulence [Not Recovered/Not Resolved]
  - Decreased appetite [Unknown]
  - Defaecation urgency [Not Recovered/Not Resolved]
  - Headache [Unknown]
  - Abdominal pain [Not Recovered/Not Resolved]
